FAERS Safety Report 20370407 (Version 4)
Quarter: 2023Q2

REPORT INFORMATION
  Report Type: Spontaneous
  Country: US (occurrence: US)
  Receive Date: 20220124
  Receipt Date: 20230417
  Transmission Date: 20230721
  Serious: No
  Sender: FDA-Public Use
  Company Number: US-PFIZER INC-202101559269

PATIENT
  Age: 71 Year
  Sex: Female

DRUGS (1)
  1. IBRANCE [Suspect]
     Active Substance: PALBOCICLIB
     Dosage: 125 MG
     Dates: start: 20210701

REACTIONS (4)
  - Full blood count decreased [Unknown]
  - Gait disturbance [Unknown]
  - Illness [Unknown]
  - Nervousness [Unknown]

NARRATIVE: CASE EVENT DATE: 20210101
